FAERS Safety Report 8962165 (Version 1)
Quarter: 2012Q4

REPORT INFORMATION
  Report Type: 
  Country: US (occurrence: US)
  Receive Date: 20121212
  Receipt Date: 20121212
  Transmission Date: 20130627
  Serious: No
  Sender: FDA-Public Use
  Company Number: US-PFIZER INC-2006057820

PATIENT
  Age: 66 Year
  Sex: Male
  Weight: 76.2 kg

DRUGS (4)
  1. FISH OIL [Concomitant]
     Route: 065
  2. CELEBREX [Suspect]
     Indication: ILL-DEFINED DISORDER
     Dosage: UNKNOWN
     Route: 065
     Dates: start: 2005, end: 2005
  3. IBUPROFEN [Suspect]
     Indication: DISCOMFORT
     Dosage: UNKNOWN
     Route: 065
  4. ACETYLSALICYLIC ACID [Concomitant]
     Route: 065

REACTIONS (5)
  - Palpitations [Recovered/Resolved]
  - Haemangioma [Unknown]
  - Abdominal discomfort [Unknown]
  - Stress [Unknown]
  - Anxiety [Unknown]
